FAERS Safety Report 16176846 (Version 1)
Quarter: 2019Q2

REPORT INFORMATION
  Report Type: Spontaneous
  Country: CA (occurrence: US)
  Receive Date: 20190409
  Receipt Date: 20190409
  Transmission Date: 20190711
  Serious: Yes (Other)
  Sender: FDA-Public Use
  Company Number: CA-GILEAD-2019-0400769

PATIENT
  Sex: Male

DRUGS (1)
  1. YESCARTA [Suspect]
     Active Substance: AXICABTAGENE CILOLEUCEL
     Indication: PRODUCT USED FOR UNKNOWN INDICATION
     Route: 065

REACTIONS (5)
  - Epstein-Barr virus infection [Not Recovered/Not Resolved]
  - Hepatotoxicity [Unknown]
  - Neurotoxicity [Unknown]
  - Immunosuppression [Not Recovered/Not Resolved]
  - Cytokine release syndrome [Unknown]
